FAERS Safety Report 7573858-5 (Version None)
Quarter: 2011Q2

REPORT INFORMATION
  Report Type: 
  Country: None (occurrence: None)
  Receive Date: 20110627
  Receipt Date: 20110617
  Transmission Date: 20111010
  Serious: Yes (Other)
  Sender: FDA-Public Use
  Company Number: A0932296A

PATIENT
  Age: 72 Year
  Sex: Female
  Weight: 63.6 kg

DRUGS (15)
  1. CHANTIX [Suspect]
     Indication: SMOKING CESSATION THERAPY
     Route: 048
     Dates: start: 20061201
  2. TIAZAC [Concomitant]
  3. LOPERAMIDE [Concomitant]
  4. PROMETHAZINE [Concomitant]
  5. AMITRIPTYLINE HCL [Concomitant]
  6. RHINOCORT [Concomitant]
  7. ZYRTEC [Concomitant]
  8. MECLIZINE [Concomitant]
  9. NICOTINE [Suspect]
     Indication: SMOKING CESSATION THERAPY
  10. ACETYLSALICYLIC ACID SRT [Concomitant]
  11. PREMARIN [Concomitant]
  12. DILTIAZEM [Concomitant]
  13. NICODERM [Suspect]
     Indication: SMOKING CESSATION THERAPY
     Route: 062
  14. SPIRIVA [Concomitant]
  15. PAXIL [Suspect]
     Indication: ANXIETY
     Route: 048

REACTIONS (8)
  - ORAL DISCOMFORT [None]
  - FORMICATION [None]
  - PSYCHOMOTOR HYPERACTIVITY [None]
  - NERVOUSNESS [None]
  - FEELING JITTERY [None]
  - AGGRESSION [None]
  - DRUG INTERACTION [None]
  - TREMOR [None]
